FAERS Safety Report 10301707 (Version 2)
Quarter: 2014Q4

REPORT INFORMATION
  Report Type: Spontaneous
  Country: US (occurrence: US)
  Receive Date: 20140714
  Receipt Date: 20141107
  Transmission Date: 20150528
  Serious: Yes (Other)
  Sender: FDA-Public Use
  Company Number: US-SA-2014SA089373

PATIENT
  Age: 71 Year
  Sex: Male
  Weight: 96.16 kg

DRUGS (14)
  1. LANTUS SOLOSTAR [Suspect]
     Active Substance: INSULIN GLARGINE
     Indication: TYPE 2 DIABETES MELLITUS
     Dosage: 3 TO 4 TIMES A DAY
     Route: 065
     Dates: start: 20140709
  2. LANTUS SOLOSTAR [Suspect]
     Active Substance: INSULIN GLARGINE
     Indication: TYPE 2 DIABETES MELLITUS
     Dosage: DOSE:25 UNIT(S)
     Route: 065
     Dates: start: 201404
  3. GLIPIZIDE. [Concomitant]
     Active Substance: GLIPIZIDE
     Dosage: 15 MG TAB IN AM AND 5 MG IN EVENING
  4. HUMALOG [Suspect]
     Active Substance: INSULIN LISPRO
     Indication: PRODUCT USED FOR UNKNOWN INDICATION
     Route: 065
  5. LOSARTAN POTASSIUM. [Concomitant]
     Active Substance: LOSARTAN POTASSIUM
     Dosage: 100 MG TAB
  6. NITROGLYCERINE [Concomitant]
     Active Substance: NITROGLYCERIN
     Dosage: 0.2 MG/HR PATCH ONCE DAILY
  7. NOVOLOG [Concomitant]
     Active Substance: INSULIN ASPART
     Dosage: 9-12 UNITS OF NOVOLOG
  8. LANTUS SOLOSTAR [Suspect]
     Active Substance: INSULIN GLARGINE
     Indication: TYPE 2 DIABETES MELLITUS
     Dosage: DOSE:25 UNIT(S)
     Route: 065
  9. PRAVASTATIN SODIUM. [Concomitant]
     Active Substance: PRAVASTATIN SODIUM
     Dosage: 20 MG TAB
  10. AMLODIPINE BESILATE [Concomitant]
     Active Substance: AMLODIPINE BESYLATE
     Dosage: 10 MG TAB
  11. MOTRIN [Concomitant]
     Active Substance: IBUPROFEN
     Indication: ARTHRITIS
  12. CENTRUM SILVER [Concomitant]
     Active Substance: VITAMINS
     Dosage: 50+ TAB
  13. LABETALOL HYDROCHLORIDE. [Concomitant]
     Active Substance: LABETALOL HYDROCHLORIDE
  14. ROBAXIN [Concomitant]
     Active Substance: METHOCARBAMOL
     Indication: ARTHRITIS

REACTIONS (14)
  - Unevaluable event [Unknown]
  - Patella fracture [Unknown]
  - Feeling abnormal [Unknown]
  - Fall [Unknown]
  - Diabetes mellitus inadequate control [Unknown]
  - Blood glucose increased [Unknown]
  - Drug administration error [Unknown]
  - Restless legs syndrome [Unknown]
  - Hypoaesthesia [Unknown]
  - Loss of consciousness [Recovered/Resolved]
  - Delirium [Unknown]
  - Asthenia [Recovered/Resolved]
  - Blood glucose decreased [Unknown]
  - Drug dose omission [Unknown]

NARRATIVE: CASE EVENT DATE: 2005
